FAERS Safety Report 14900108 (Version 1)
Quarter: 2018Q2

REPORT INFORMATION
  Report Type: Spontaneous
  Country: ES (occurrence: ES)
  Receive Date: 20180516
  Receipt Date: 20180516
  Transmission Date: 20180711
  Serious: Yes (Other)
  Sender: FDA-Public Use
  Company Number: ES-STRIDES ARCOLAB LIMITED-2018SP003677

PATIENT

DRUGS (3)
  1. IBUPROFEN. [Suspect]
     Active Substance: IBUPROFEN
     Indication: PATENT DUCTUS ARTERIOSUS
     Dosage: 10 MG/KG/DAY
     Route: 042
  2. IBUPROFEN. [Suspect]
     Active Substance: IBUPROFEN
     Dosage: 5 MG/KG/DAY
     Route: 042
  3. IBUPROFEN. [Suspect]
     Active Substance: IBUPROFEN
     Dosage: 5 MG/KG/DAY
     Route: 042

REACTIONS (1)
  - Drug ineffective [Unknown]
